FAERS Safety Report 5115068-7 (Version None)
Quarter: 2006Q3

REPORT INFORMATION
  Report Type: 
  Country: None (occurrence: None)
  Receive Date: 20060925
  Receipt Date: 20060925
  Transmission Date: 20061208
  Serious: Yes (Hospitalization)
  Sender: FDA-Public Use
  Company Number: None

PATIENT
  Age: 62 Year
  Sex: Male
  Weight: 94.7 kg

DRUGS (2)
  1. LISINOPRIL [Suspect]
     Indication: HYPERTENSION
     Dosage: 80 MG QD PO
     Route: 048
  2. HYDROCHLOROTHIAZIDE 50MG TAB [Suspect]
     Indication: HYPERTENSION
     Dosage: 50 MG QD PO
     Route: 048

REACTIONS (16)
  - AMAUROSIS FUGAX [None]
  - ARTERIOSCLEROSIS [None]
  - BLINDNESS [None]
  - CAROTID ARTERY STENOSIS [None]
  - DEPRESSED LEVEL OF CONSCIOUSNESS [None]
  - DIZZINESS [None]
  - DIZZINESS POSTURAL [None]
  - FACIAL NERVE DISORDER [None]
  - HEADACHE [None]
  - HYPOTENSION [None]
  - MITRAL VALVE INCOMPETENCE [None]
  - NUCLEAR MAGNETIC RESONANCE IMAGING BRAIN ABNORMAL [None]
  - PAIN [None]
  - TRANSIENT ISCHAEMIC ATTACK [None]
  - TRICUSPID VALVE INCOMPETENCE [None]
  - VISUAL DISTURBANCE [None]
